FAERS Safety Report 5455665-2 (Version None)
Quarter: 2007Q3

REPORT INFORMATION
  Report Type: 
  Country: None (occurrence: None)
  Receive Date: 20070918
  Receipt Date: 20070702
  Transmission Date: 20080115
  Serious: Yes (Other)
  Sender: FDA-Public Use
  Company Number: US-ASTRAZENECA-2006UW22313

PATIENT
  Age: 31 Year
  Sex: Female
  Weight: 80.9 kg

DRUGS (8)
  1. SEROQUEL [Suspect]
     Indication: DEPRESSION
     Route: 048
     Dates: end: 20020101
  2. SEROQUEL [Suspect]
     Indication: BIPOLAR DISORDER
     Route: 048
     Dates: end: 20020101
  3. SEROQUEL [Suspect]
     Indication: ANXIETY
     Route: 048
     Dates: end: 20020101
  4. MERIDIA [Concomitant]
     Dates: start: 20020101, end: 20050101
  5. XENICAL [Concomitant]
     Dates: start: 20020101, end: 20050101
  6. HALDOL [Concomitant]
     Dates: start: 19880101
  7. STELAZINE [Concomitant]
     Dates: start: 19880101
  8. TRILAFON [Concomitant]
     Dates: start: 19900101

REACTIONS (4)
  - BLOOD CHOLESTEROL INCREASED [None]
  - DEPRESSION [None]
  - DIABETES MELLITUS [None]
  - TARDIVE DYSKINESIA [None]
